FAERS Safety Report 8181985-7 (Version None)
Quarter: 2012Q1

REPORT INFORMATION
  Report Type: 
  Country: None (occurrence: None)
  Receive Date: 20120302
  Receipt Date: 20120224
  Transmission Date: 20120608
  Serious: Yes (Hospitalization)
  Sender: FDA-Public Use
  Company Number: IT-ASTRAZENECA-2012SE12449

PATIENT
  Age: 12240 Day
  Sex: Female

DRUGS (2)
  1. SEROQUEL [Suspect]
     Indication: INTENTIONAL OVERDOSE
     Dosage: 20 TABLETS OF  25MG, 20 DF ONCE
     Route: 048
     Dates: start: 20120112, end: 20120112
  2. SEROQUEL [Suspect]
     Indication: PSYCHOTIC DISORDER
     Dosage: 20 TABLETS OF  25MG, 20 DF ONCE
     Route: 048
     Dates: start: 20120112, end: 20120112

REACTIONS (2)
  - TACHYCARDIA [None]
  - SOPOR [None]
